FAERS Safety Report 5850092-8 (Version None)
Quarter: 2008Q3

REPORT INFORMATION
  Report Type: 
  Country: None (occurrence: None)
  Receive Date: 20080819
  Receipt Date: 20080807
  Transmission Date: 20090109
  Serious: Yes (Hospitalization)
  Sender: FDA-Public Use
  Company Number: US-TYCO HEALTHCARE/MALLINCKRODT-T200801242

PATIENT

DRUGS (3)
  1. METHADONE HCL [Suspect]
     Indication: BACK PAIN
     Dosage: 20 MG, TID
     Route: 048
     Dates: start: 20080606, end: 20080702
  2. KLONOPIN [Concomitant]
     Route: 048
  3. CYMBALTA [Concomitant]
     Indication: ANXIETY
     Route: 048
     Dates: start: 20080601

REACTIONS (4)
  - BREAKTHROUGH PAIN [None]
  - DRUG INEFFECTIVE [None]
  - NEPHROLITHIASIS [None]
  - WITHDRAWAL SYNDROME [None]
